FAERS Safety Report 8917049 (Version 3)
Quarter: 2013Q1

REPORT INFORMATION
  Report Type: Report from Study
  Country: US (occurrence: US)
  Receive Date: 20121120
  Receipt Date: 20130114
  Transmission Date: 20140127
  Serious: Yes (Hospitalization)
  Sender: FDA-Public Use
  Company Number: US-ACTELION-A-US2012-74382

PATIENT
  Age: 70 Year
  Sex: Female

DRUGS (4)
  1. TRACLEER [Suspect]
     Indication: PULMONARY ARTERIAL HYPERTENSION
     Dosage: UNK
     Route: 048
  2. SILDENAFIL [Concomitant]
     Indication: PULMONARY ARTERIAL HYPERTENSION
  3. COUMADIN [Concomitant]
  4. PLAVIX [Concomitant]

REACTIONS (6)
  - Cardiac arrest [Unknown]
  - Circulatory collapse [Unknown]
  - Pulseless electrical activity [Unknown]
  - Syncope [Unknown]
  - Constipation [Unknown]
  - Cough [Unknown]
